FAERS Safety Report 24647658 (Version 1)
Quarter: 2024Q4

REPORT INFORMATION
  Report Type: Spontaneous
  Country: AR (occurrence: AR)
  Receive Date: 20241121
  Receipt Date: 20241121
  Transmission Date: 20250114
  Serious: Yes (Hospitalization, Other)
  Sender: SANDOZ
  Company Number: AR-SANDOZ-SDZ2024AR096838

PATIENT
  Sex: Male
  Weight: 50.2 kg

DRUGS (1)
  1. OMNITROPE [Suspect]
     Active Substance: SOMATROPIN
     Indication: Foetal growth restriction
     Dosage: 2.2 MG,7 DAYS A WEEK
     Route: 058
     Dates: start: 20180909

REACTIONS (1)
  - Appendicitis [Unknown]
